FAERS Safety Report 18480344 (Version 1)
Quarter: 2020Q4

REPORT INFORMATION
  Report Type: Spontaneous
  Country: US (occurrence: US)
  Receive Date: 20201109
  Receipt Date: 20201109
  Transmission Date: 20210114
  Serious: Yes (Other)
  Sender: FDA-Public Use
  Company Number: None

PATIENT
  Age: 62 Year
  Sex: Female
  Weight: 88.2 kg

DRUGS (15)
  1. DILTIAZAM [Concomitant]
  2. FENOFIBRATE. [Concomitant]
     Active Substance: FENOFIBRATE
  3. SERTRALINE [Concomitant]
     Active Substance: SERTRALINE HYDROCHLORIDE
  4. SPIRONOLACTONE. [Concomitant]
     Active Substance: SPIRONOLACTONE
  5. METOPROLOL. [Suspect]
     Active Substance: METOPROLOL
  6. METFORMIN [Concomitant]
     Active Substance: METFORMIN HYDROCHLORIDE
  7. FUROSEMIDE. [Concomitant]
     Active Substance: FUROSEMIDE
  8. LOSARTAN. [Concomitant]
     Active Substance: LOSARTAN
  9. TOUJEO [Concomitant]
     Active Substance: INSULIN GLARGINE
  10. PRAVASTATIN. [Concomitant]
     Active Substance: PRAVASTATIN
  11. XARELTO [Concomitant]
     Active Substance: RIVAROXABAN
  12. OZEMPIC [Concomitant]
     Active Substance: SEMAGLUTIDE
  13. PRAMIPEXOLE HCL [Concomitant]
     Active Substance: PRAMIPEXOLE
  14. TRAZODONE [Concomitant]
     Active Substance: TRAZODONE HYDROCHLORIDE
  15. SOTALOL 80 MG TABLETTI [Suspect]
     Active Substance: SOTALOL
     Indication: ATRIAL FLUTTER
     Dosage: ?          QUANTITY:.5 TABLET(S);?
     Route: 048
     Dates: start: 20201013, end: 20201015

REACTIONS (5)
  - Dyspnoea [None]
  - Drug monitoring procedure not performed [None]
  - Product label issue [None]
  - Contraindicated product administered [None]
  - Product prescribing issue [None]

NARRATIVE: CASE EVENT DATE: 20201013
